FAERS Safety Report 6409527-4 (Version None)
Quarter: 2009Q4

REPORT INFORMATION
  Report Type: 
  Country: None (occurrence: None)
  Receive Date: 20091022
  Receipt Date: 20091015
  Transmission Date: 20100525
  Serious: Yes (Other)
  Sender: FDA-Public Use
  Company Number: US-RB-022160-09

PATIENT
  Age: 29 Year
  Sex: Female

DRUGS (2)
  1. SUBUTEX [Suspect]
     Route: 060
     Dates: start: 20090921
  2. SUBOXONE [Suspect]
     Route: 060
     Dates: start: 20090721, end: 20090920

REACTIONS (5)
  - BACK PAIN [None]
  - BLOOD URINE PRESENT [None]
  - NEPHROLITHIASIS [None]
  - SOMNOLENCE [None]
  - VOMITING [None]
